FAERS Safety Report 9491683 (Version 4)
Quarter: 2014Q2

REPORT INFORMATION
  Report Type: Spontaneous
  Country: US (occurrence: US)
  Receive Date: 20130830
  Receipt Date: 20140618
  Transmission Date: 20141212
  Serious: Yes (Other)
  Sender: FDA-Public Use
  Company Number: US-BAYER-2013-105004

PATIENT
  Age: 22 Year
  Sex: Female

DRUGS (1)
  1. MIRENA [Suspect]
     Indication: CONTRACEPTION
     Dosage: 20 MCG/24HR, CONT
     Route: 015
     Dates: start: 20130701, end: 20130730

REACTIONS (4)
  - Device dislocation [Recovered/Resolved]
  - Device dislocation [None]
  - Pregnancy with contraceptive device [Not Recovered/Not Resolved]
  - Medication error [None]
